FAERS Safety Report 6559535-8 (Version None)
Quarter: 2010Q1

REPORT INFORMATION
  Report Type: 
  Country: None (occurrence: None)
  Receive Date: 20100129
  Receipt Date: 20090901
  Transmission Date: 20100710
  Serious: No
  Sender: FDA-Public Use
  Company Number: US-ABBOTT-09P-163-0595570-00

PATIENT
  Sex: Female

DRUGS (3)
  1. HUMIRA [Suspect]
     Indication: ARTHRITIS REACTIVE
     Route: 058
     Dates: start: 20090320
  2. YASMIN [Concomitant]
     Indication: CONTRACEPTION
     Dosage: UNKNOWN
  3. PRILOSEC [Concomitant]
     Indication: DYSPEPSIA
     Dosage: UNKNOWN

REACTIONS (1)
  - HEPATIC ENZYME INCREASED [None]
